FAERS Safety Report 20833142 (Version 1)
Quarter: 2022Q2

REPORT INFORMATION
  Report Type: Spontaneous
  Country: US (occurrence: None)
  Receive Date: 20220515
  Receipt Date: 20220515
  Transmission Date: 20220721
  Serious: Yes (Disabling)
  Sender: FDA-Public Use
  Company Number: None

PATIENT
  Age: 30 Year
  Sex: Female
  Weight: 52.16 kg

DRUGS (2)
  1. QWO [Suspect]
     Active Substance: COLLAGENASE CLOSTRIDIUM HISTOLYTICUM-AAES
     Dates: start: 20210501, end: 20210630
  2. qwo cellulite [Concomitant]

REACTIONS (4)
  - Skin discolouration [None]
  - Skin atrophy [None]
  - Fear [None]
  - Depression [None]

NARRATIVE: CASE EVENT DATE: 20210501
